FAERS Safety Report 5766825-5 (Version None)
Quarter: 2008Q2

REPORT INFORMATION
  Report Type: 
  Country: None (occurrence: None)
  Receive Date: 20080612
  Receipt Date: 20080602
  Transmission Date: 20081010
  Serious: Yes (Hospitalization)
  Sender: FDA-Public Use
  Company Number: JP-JNJFOC-20080407035

PATIENT
  Sex: Female

DRUGS (14)
  1. REMICADE [Suspect]
     Dosage: SECOND DOSE
     Route: 042
  2. REMICADE [Suspect]
     Indication: RHEUMATOID ARTHRITIS
     Dosage: FIRST DOSE
     Route: 042
  3. RIMATIL [Concomitant]
     Indication: RHEUMATOID ARTHRITIS
     Dosage: DAILY DOSE: 200 MG, 100 MG
     Route: 048
  4. CYANOCOBALAMIN [Concomitant]
     Dosage: DAILY DOSE: 1.5 MG, 0.5 MG
     Route: 048
  5. RHEUMATREX [Concomitant]
     Indication: RHEUMATOID ARTHRITIS
  6. PREDNISOLONE [Concomitant]
     Indication: RHEUMATOID ARTHRITIS
     Route: 048
  7. ASPARA-CA [Concomitant]
     Indication: RHEUMATOID ARTHRITIS
     Dosage: 600 MG, 200 MG DAILY
     Route: 048
  8. MUCOSTA [Concomitant]
     Indication: RHEUMATOID ARTHRITIS
     Dosage: DAILY DOSE: 300 MG, 100 MG
     Route: 048
  9. PEON [Concomitant]
     Indication: RHEUMATOID ARTHRITIS
     Dosage: DAILY DOSE: 180 MG, 60 MG
     Route: 048
  10. FAMOTIDINE [Concomitant]
     Indication: RHEUMATOID ARTHRITIS
     Route: 048
  11. TSUMURA DAIO-KANZO-TO [Concomitant]
     Indication: CONSTIPATION
     Route: 048
  12. HALCION [Concomitant]
     Indication: INSOMNIA
     Route: 048
  13. FOLIAMIN [Concomitant]
     Indication: RHEUMATOID ARTHRITIS
     Route: 048
  14. BONALON [Concomitant]
     Indication: RHEUMATOID ARTHRITIS
     Route: 048

REACTIONS (1)
  - PNEUMOCYSTIS JIROVECI PNEUMONIA [None]
